FAERS Safety Report 5473168-6 (Version None)
Quarter: 2007Q3

REPORT INFORMATION
  Report Type: 
  Country: None (occurrence: None)
  Receive Date: 20070927
  Receipt Date: 20070921
  Transmission Date: 20080115
  Serious: Yes (Death)
  Sender: FDA-Public Use
  Company Number: 2007-04314

PATIENT
  Age: 75 Year
  Sex: Female

DRUGS (3)
  1. SERTRALINE HYDROCHLORIDE [Suspect]
     Indication: BIPOLAR I DISORDER
     Dosage: 50 MG, BID, ORAL
     Route: 048
  2. CARBAMAZEPINE [Suspect]
     Indication: BIPOLAR I DISORDER
     Dosage: 200 MG, BID, ORAL
     Route: 048
  3. PERICYAZINE () [Suspect]
     Indication: BIPOLAR I DISORDER
     Dosage: 5 MG, TID,

REACTIONS (4)
  - ACUTE RESPIRATORY DISTRESS SYNDROME [None]
  - MULTI-ORGAN FAILURE [None]
  - PULMONARY OEDEMA [None]
  - RESPIRATORY FAILURE [None]
